FAERS Safety Report 10618068 (Version 2)
Quarter: 2014Q4

REPORT INFORMATION
  Report Type: Report from Study
  Country: ES (occurrence: ES)
  Receive Date: 20141202
  Receipt Date: 20141210
  Transmission Date: 20150529
  Serious: Yes (Death, Hospitalization, Other)
  Sender: FDA-Public Use
  Company Number: ES-GILEAD-2014-0124988

PATIENT
  Age: 61 Year
  Sex: Male
  Weight: 85 kg

DRUGS (6)
  1. MYCOPHENOLATE MOFETIL. [Concomitant]
     Active Substance: MYCOPHENOLATE MOFETIL
     Indication: IMMUNOSUPPRESSION
     Dosage: UNK UNKNOWN, UNK
     Route: 065
     Dates: start: 20140729, end: 20140816
  2. GANCICLOVIR. [Concomitant]
     Active Substance: GANCICLOVIR
     Indication: ANTIVIRAL PROPHYLAXIS
     Dosage: UNK UNKNOWN, UNK
     Route: 065
     Dates: start: 20140729, end: 20140822
  3. DACLATASVIR [Suspect]
     Active Substance: DACLATASVIR
     Indication: HEPATITIS C
     Dosage: 60 MG, QD
     Route: 048
     Dates: start: 20140618, end: 20140829
  4. TACROLIMUS. [Concomitant]
     Active Substance: TACROLIMUS
     Indication: IMMUNOSUPPRESSION
     Dosage: UNK UNKNOWN, UNK
     Route: 065
     Dates: start: 20140729, end: 20140826
  5. SOFOSBUVIR [Suspect]
     Active Substance: SOFOSBUVIR
     Indication: HEPATITIS C
     Dosage: 400 MG, QD
     Route: 048
     Dates: start: 20140618, end: 20140829
  6. ANIDULAFUNGIN [Concomitant]
     Active Substance: ANIDULAFUNGIN
     Indication: ANTIFUNGAL PROPHYLAXIS
     Dosage: UNK UNKNOWN, UNK
     Route: 065
     Dates: start: 20140729, end: 20140826

REACTIONS (2)
  - Sepsis [Fatal]
  - Renal injury [Not Recovered/Not Resolved]

NARRATIVE: CASE EVENT DATE: 20140730
